FAERS Safety Report 6604677-1 (Version None)
Quarter: 2010Q1

REPORT INFORMATION
  Report Type: 
  Country: None (occurrence: None)
  Receive Date: 20100226
  Receipt Date: 20100217
  Transmission Date: 20100710
  Serious: Yes (Hospitalization, Other)
  Sender: FDA-Public Use
  Company Number: US-PFIZER INC-2010000133

PATIENT
  Sex: Female
  Weight: 68.027 kg

DRUGS (8)
  1. QUINAPRIL HCL [Suspect]
     Indication: CORONARY ARTERY DISEASE
     Dosage: 10 MG, DAILY
     Route: 048
     Dates: start: 20090801
  2. LOPRESSOR [Suspect]
     Indication: HYPERTENSION
     Dosage: 25 MG, 2X/DAY
     Dates: start: 20090801
  3. PLAVIX [Concomitant]
     Dosage: UNK
     Dates: start: 20090801
  4. ACETYLSALICYLIC ACID [Concomitant]
     Dosage: 81 MG, UNK
  5. ALPRAZOLAM [Concomitant]
     Dosage: UNK
  6. PROVERA [Concomitant]
     Dosage: UNK
  7. ZETIA [Concomitant]
     Dosage: UNK
     Dates: start: 20090801, end: 20090801
  8. SIMVASTATIN [Concomitant]
     Dosage: UNK
     Dates: start: 20090801

REACTIONS (11)
  - ASTHENIA [None]
  - BLOOD MAGNESIUM INCREASED [None]
  - CORONARY ARTERIAL STENT INSERTION [None]
  - FEELING ABNORMAL [None]
  - FLUSHING [None]
  - HIGH DENSITY LIPOPROTEIN DECREASED [None]
  - HYPERHIDROSIS [None]
  - LIP SWELLING [None]
  - LOW DENSITY LIPOPROTEIN INCREASED [None]
  - RED BLOOD CELL COUNT INCREASED [None]
  - TOTAL CHOLESTEROL/HDL RATIO DECREASED [None]
